FAERS Safety Report 6894559-2 (Version None)
Quarter: 2010Q3

REPORT INFORMATION
  Report Type: 
  Country: None (occurrence: None)
  Receive Date: 20100802
  Receipt Date: 20100720
  Transmission Date: 20110219
  Serious: Yes (Other)
  Sender: FDA-Public Use
  Company Number: PHHY2010MX05863

PATIENT
  Age: 84 Year
  Sex: Female

DRUGS (3)
  1. ACLASTA [Suspect]
     Indication: OSTEOPOROSIS
     Dosage: ONE INJECTION 5 MG/100ML PER YEAR
     Route: 042
     Dates: start: 20090201
  2. ACLASTA [Suspect]
     Dosage: ONE INJECTION 5 MG/100ML PER YEAR
     Route: 042
     Dates: start: 20100210
  3. DIACEREIN [Concomitant]

REACTIONS (2)
  - IMPAIRED HEALING [None]
  - SKIN FISSURES [None]
